FAERS Safety Report 9890887 (Version 1)
Quarter: 2014Q1

REPORT INFORMATION
  Report Type: Spontaneous
  Country: US (occurrence: None)
  Receive Date: 20140210
  Receipt Date: 20140210
  Transmission Date: 20141002
  Serious: No
  Sender: FDA-Public Use
  Company Number: None

PATIENT
  Age: 45 Year
  Sex: Female
  Weight: 90.72 kg

DRUGS (5)
  1. RIZATRIPTAN BENZOATE [Suspect]
     Indication: MIGRAINE
     Route: 048
     Dates: start: 20130515, end: 20131004
  2. LEVOTHYROXINE [Concomitant]
  3. ESCITCLOPRAM [Concomitant]
  4. VITAMIN D [Concomitant]
  5. IRON [Concomitant]

REACTIONS (4)
  - Drug ineffective [None]
  - Migraine [None]
  - Abdominal discomfort [None]
  - Nausea [None]
